FAERS Safety Report 9340120 (Version 1)
Quarter: 2013Q2

REPORT INFORMATION
  Report Type: Spontaneous
  Country: US (occurrence: None)
  Receive Date: 20130607
  Receipt Date: 20130607
  Transmission Date: 20140414
  Serious: Yes (Hospitalization)
  Sender: FDA-Public Use
  Company Number: None

PATIENT
  Age: 72 Year
  Sex: Male
  Weight: 68.5 kg

DRUGS (1)
  1. REGORAFENIB [Suspect]
     Indication: COLON CANCER
     Dates: start: 20130419, end: 20130501

REACTIONS (3)
  - Arthralgia [None]
  - Hypertension [None]
  - Headache [None]
